FAERS Safety Report 9696366 (Version 1)
Quarter: 2013Q4

REPORT INFORMATION
  Report Type: Spontaneous
  Country: JP (occurrence: JP)
  Receive Date: 20131119
  Receipt Date: 20131119
  Transmission Date: 20140711
  Serious: Yes (Other)
  Sender: FDA-Public Use
  Company Number: JP-ELI_LILLY_AND_COMPANY-JP201311003313

PATIENT
  Age: 27 Year
  Sex: Male

DRUGS (4)
  1. GEMZAR [Suspect]
     Indication: HODGKIN^S DISEASE
     Dosage: 1000 MG/M2, OTHER
     Route: 042
  2. RITUXAN [Concomitant]
     Indication: HODGKIN^S DISEASE
     Dosage: 357 MG/M2, OTHER
     Route: 042
  3. DEXART [Concomitant]
     Indication: HODGKIN^S DISEASE
     Dosage: 33 MG, OTHER
     Route: 042
  4. CISPLATIN [Concomitant]
     Indication: HODGKIN^S DISEASE
     Dosage: 250 MG/M2, OTHER
     Route: 042

REACTIONS (5)
  - Pancreatic disorder [Unknown]
  - Anaemia [Unknown]
  - Platelet count decreased [Unknown]
  - Neutrophil count decreased [Unknown]
  - Oedema [Unknown]
